FAERS Safety Report 9565503 (Version 2)
Quarter: 2013Q4

REPORT INFORMATION
  Report Type: Spontaneous
  Country: BR (occurrence: BR)
  Receive Date: 20130930
  Receipt Date: 20131126
  Transmission Date: 20140711
  Serious: Yes (Other)
  Sender: FDA-Public Use
  Company Number: BR-ASTRAZENECA-2013SE71606

PATIENT
  Age: 59 Year
  Sex: Male

DRUGS (3)
  1. ATACAND [Suspect]
     Indication: HYPERTENSION
     Route: 048
     Dates: start: 2012, end: 20130919
  2. ATACAND [Suspect]
     Indication: HYPERTENSION
     Route: 048
     Dates: start: 20130920, end: 201310
  3. ATACAND [Suspect]
     Indication: HYPERTENSION
     Route: 048

REACTIONS (2)
  - Blood pressure increased [Recovered/Resolved]
  - Drug ineffective [Unknown]
